FAERS Safety Report 8158024-7 (Version None)
Quarter: 2012Q1

REPORT INFORMATION
  Report Type: 
  Country: None (occurrence: None)
  Receive Date: 20120222
  Receipt Date: 20120214
  Transmission Date: 20120608
  Serious: Yes (Other)
  Sender: FDA-Public Use
  Company Number: PHHY2011FR110269

PATIENT
  Sex: Male
  Weight: 65 kg

DRUGS (10)
  1. PULMICORT-100 [Concomitant]
  2. CRESTOR [Concomitant]
  3. HYPERIUM [Concomitant]
  4. SPIRIVA [Concomitant]
  5. PERMIXON [Concomitant]
  6. TELMISARTAN AND HYDROCHLOROTHIAZIDE [Concomitant]
  7. LANSOPRAZOLE [Concomitant]
  8. ONBREZ [Suspect]
     Indication: CHRONIC OBSTRUCTIVE PULMONARY DISEASE
     Dosage: 1 DF, UNK
     Dates: start: 20111214, end: 20111214
  9. PLAVIX [Concomitant]
  10. SINGULAIR [Concomitant]

REACTIONS (2)
  - SUFFOCATION FEELING [None]
  - PARAESTHESIA [None]
